FAERS Safety Report 8127138-X (Version None)
Quarter: 2012Q1

REPORT INFORMATION
  Report Type: 
  Country: None (occurrence: None)
  Receive Date: 20120210
  Receipt Date: 20120130
  Transmission Date: 20120608
  Serious: Yes (Other)
  Sender: FDA-Public Use
  Company Number: JP-ELI_LILLY_AND_COMPANY-JP201201009032

PATIENT
  Sex: Female

DRUGS (2)
  1. CALCIUM [Concomitant]
     Route: 048
  2. FORTEO [Suspect]
     Dosage: UNK
     Route: 058
     Dates: start: 20111001

REACTIONS (1)
  - HEPATIC NEOPLASM MALIGNANT RECURRENT [None]
